FAERS Safety Report 6273301-2 (Version None)
Quarter: 2009Q3

REPORT INFORMATION
  Report Type: 
  Country: None (occurrence: None)
  Receive Date: 20090720
  Receipt Date: 20090707
  Transmission Date: 20100115
  Serious: Yes (Hospitalization)
  Sender: FDA-Public Use
  Company Number: BE-ELI_LILLY_AND_COMPANY-BE200907001472

PATIENT
  Age: 75 Year
  Sex: Female

DRUGS (2)
  1. GEMZAR [Suspect]
     Indication: LUNG NEOPLASM MALIGNANT
  2. CISPLATIN [Concomitant]
     Indication: LUNG NEOPLASM MALIGNANT

REACTIONS (2)
  - ACUTE RESPIRATORY FAILURE [None]
  - PLEURAL EFFUSION [None]
